FAERS Safety Report 6637452-2 (Version None)
Quarter: 2010Q1

REPORT INFORMATION
  Report Type: 
  Country: None (occurrence: None)
  Receive Date: 20100311
  Receipt Date: 20100223
  Transmission Date: 20100710
  Serious: Yes (Other)
  Sender: FDA-Public Use
  Company Number: 519329

PATIENT

DRUGS (2)
  1. GENTAMICIN [Suspect]
     Indication: ANTIBIOTIC PROPHYLAXIS
  2. RIVAROXABAN [Suspect]
     Indication: DRUG USE FOR UNKNOWN INDICATION

REACTIONS (1)
  - RENAL FAILURE [None]
